FAERS Safety Report 11031059 (Version 1)
Quarter: 2015Q2

REPORT INFORMATION
  Report Type: Spontaneous
  Country: US (occurrence: US)
  Receive Date: 20150415
  Receipt Date: 20150415
  Transmission Date: 20150821
  Serious: No
  Sender: FDA-Public Use
  Company Number: US-ASTRAZENECA-2014SE64064

PATIENT
  Age: 74 Year
  Sex: Female

DRUGS (2)
  1. PRILOSEC OTC [Suspect]
     Active Substance: OMEPRAZOLE MAGNESIUM
     Route: 048
  2. NONE REPORTED [Concomitant]

REACTIONS (3)
  - Wrong technique in drug usage process [Unknown]
  - Product packaging issue [Unknown]
  - Dysgeusia [Unknown]
